FAERS Safety Report 7377717-2 (Version None)
Quarter: 2011Q1

REPORT INFORMATION
  Report Type: 
  Country: None (occurrence: None)
  Receive Date: 20110328
  Receipt Date: 20110318
  Transmission Date: 20110831
  Serious: Yes (Death)
  Sender: FDA-Public Use
  Company Number: US-JNJFOC-20100306593

PATIENT
  Age: 52 Year
  Sex: Male

DRUGS (7)
  1. TRAMADOL HCL [Suspect]
     Indication: ILL-DEFINED DISORDER
  2. CYCLOBENZAPRINE [Suspect]
     Indication: ILL-DEFINED DISORDER
  3. ACETAMINOPHEN [Suspect]
  4. ACETAMINOPHEN [Suspect]
     Indication: ILL-DEFINED DISORDER
  5. CODEINE [Suspect]
     Indication: ILL-DEFINED DISORDER
  6. SALICYLATES NOS [Concomitant]
  7. HYDROCODONE BITARTRATE [Suspect]
     Indication: ILL-DEFINED DISORDER

REACTIONS (1)
  - TOXICITY TO VARIOUS AGENTS [None]
